FAERS Safety Report 21582507 (Version 1)
Quarter: 2022Q4

REPORT INFORMATION
  Report Type: Spontaneous
  Country: JP (occurrence: None)
  Receive Date: 20221111
  Receipt Date: 20221111
  Transmission Date: 20230113
  Serious: Yes (Life-Threatening)
  Sender: FDA-Public Use
  Company Number: 2021A669993

PATIENT
  Age: 76 Year
  Sex: Male
  Weight: 48 kg

DRUGS (5)
  1. IMFINZI [Suspect]
     Active Substance: DURVALUMAB
     Indication: Small cell lung cancer
     Route: 041
     Dates: start: 20210707
  2. ETOPOSIDE [Concomitant]
     Active Substance: ETOPOSIDE
     Indication: Small cell lung cancer
     Dosage: ON DAY 1, 2, AND 3 OF EACH CYCLE
     Route: 065
     Dates: start: 20210707, end: 20210709
  3. ETOPOSIDE [Concomitant]
     Active Substance: ETOPOSIDE
     Indication: Small cell lung cancer
     Dosage: ON DAY 1, 2, AND 3 OF EACH CYCLE
     Route: 065
     Dates: start: 20210805, end: 20211001
  4. CARBOPLATIN [Concomitant]
     Active Substance: CARBOPLATIN
     Indication: Small cell lung cancer
     Dosage: 5 AUC
     Route: 065
     Dates: start: 20210707, end: 20210707
  5. CARBOPLATIN [Concomitant]
     Active Substance: CARBOPLATIN
     Indication: Small cell lung cancer
     Dosage: 4 AUC
     Route: 065
     Dates: start: 20210805, end: 20210929

REACTIONS (1)
  - Neutropenia [Unknown]
